FAERS Safety Report 9047105 (Version 1)
Quarter: 2013Q1

REPORT INFORMATION
  Report Type: Spontaneous
  Country: US (occurrence: None)
  Receive Date: 20130130
  Receipt Date: 20130130
  Transmission Date: 20140127
  Serious: Yes (Life-Threatening, Hospitalization)
  Sender: FDA-Public Use
  Company Number: None

PATIENT
  Age: 77 Year
  Sex: Male
  Weight: 105.9 kg

DRUGS (2)
  1. CLOPIDOGREL [Suspect]
     Indication: CORONARY ARTERIAL STENT INSERTION
     Route: 048
     Dates: start: 20060228, end: 20121204
  2. ASPIRIN [Suspect]
     Indication: CORONARY ARTERIAL STENT INSERTION
     Route: 048
     Dates: start: 19960124, end: 20121204

REACTIONS (7)
  - Upper gastrointestinal haemorrhage [None]
  - Fatigue [None]
  - Haemoglobin decreased [None]
  - Haematocrit decreased [None]
  - Haemorrhagic arteriovenous malformation [None]
  - Haemorrhage [None]
  - Incorrect drug administration duration [None]
